FAERS Safety Report 18073954 (Version 2)
Quarter: 2021Q1

REPORT INFORMATION
  Report Type: Spontaneous
  Country: FR (occurrence: FR)
  Receive Date: 20200727
  Receipt Date: 20210106
  Transmission Date: 20210419
  Serious: Yes (Hospitalization, Other)
  Sender: FDA-Public Use
  Company Number: FR-MYLANLABS-2020M1066466

PATIENT
  Age: 59 Year
  Sex: Male

DRUGS (7)
  1. AZITHROMYCIN ANHYDROUS. [Interacting]
     Active Substance: AZITHROMYCIN ANHYDROUS
     Indication: LOWER RESPIRATORY TRACT INFECTION VIRAL
     Dosage: 250 MILLIGRAM, QD
     Route: 048
     Dates: start: 2020, end: 2020
  2. HYDROXYCHLOROQUINE SULFATE. [Interacting]
     Active Substance: HYDROXYCHLOROQUINE SULFATE
     Indication: LOWER RESPIRATORY TRACT INFECTION VIRAL
     Dosage: 3 TIMES PER DAY FOR 10 DAYS
     Route: 048
     Dates: start: 2020, end: 2020
  3. AZITHROMYCIN ANHYDROUS. [Interacting]
     Active Substance: AZITHROMYCIN ANHYDROUS
     Dosage: FOR THE NEXT 4 DAYS
     Route: 065
     Dates: start: 2020, end: 2020
  4. HYDROXYCHLOROQUINE SULFATE. [Interacting]
     Active Substance: HYDROXYCHLOROQUINE SULFATE
     Indication: COVID-19
     Dosage: 600 MILLIGRAM, QD, 200 MILLIGRAM, TID 200 MG OF ORAL HCQ SULFATE, THREE, 200 MG TID
     Route: 048
     Dates: start: 2020, end: 2020
  5. AZITHROMYCIN ANHYDROUS. [Interacting]
     Active Substance: AZITHROMYCIN ANHYDROUS
     Dosage: ON DAY 1
     Route: 065
     Dates: start: 2020, end: 2020
  6. SOTALOL. [Suspect]
     Active Substance: SOTALOL
     Indication: ATRIAL FIBRILLATION
     Dosage: INTERRUPTED 24 HOURS BEFORE HCQ/AZT INITIATION
     Route: 065
     Dates: end: 2020
  7. AZITHROMYCIN ANHYDROUS. [Interacting]
     Active Substance: AZITHROMYCIN ANHYDROUS
     Indication: COVID-19
     Dosage: 500 MILLIGRAM, CYCLE, SINGLE
     Route: 048
     Dates: start: 2020, end: 2020

REACTIONS (4)
  - Drug interaction [Unknown]
  - Syncope [Unknown]
  - Off label use [Unknown]
  - Electrocardiogram QT prolonged [Unknown]

NARRATIVE: CASE EVENT DATE: 2020
